FAERS Safety Report 7128598-3 (Version None)
Quarter: 2010Q4

REPORT INFORMATION
  Report Type: 
  Country: None (occurrence: None)
  Receive Date: 20101130
  Receipt Date: 20101116
  Transmission Date: 20110411
  Serious: Yes (Hospitalization)
  Sender: FDA-Public Use
  Company Number: JP-NOVOPROD-310611

PATIENT
  Age: 65 Year
  Sex: Male
  Weight: 82 kg

DRUGS (9)
  1. NOVOSEVEN [Suspect]
     Indication: ACQUIRED HAEMOPHILIA
     Dosage: 10 MG, QD
     Route: 042
     Dates: start: 20100528, end: 20100621
  2. NOVOSEVEN [Suspect]
     Dosage: 2 VIAL
     Dates: start: 20100528
  3. NOVOSEVEN [Suspect]
     Dosage: 2 VIAL
     Dates: start: 20100529
  4. NOVOSEVEN [Suspect]
     Dosage: 2 VIAL
     Dates: start: 20100531
  5. FEIBA [Suspect]
  6. ROCEPHIN [Concomitant]
     Dosage: UNK
     Route: 048
     Dates: start: 20100526, end: 20100528
  7. MAXIPIME [Concomitant]
     Dosage: UNK
     Route: 042
     Dates: start: 20100525, end: 20100529
  8. MEROPEN                            /01250501/ [Concomitant]
     Dosage: UNK
     Route: 042
     Dates: start: 20100529
  9. SOSEGON                            /00052101/ [Concomitant]
     Dosage: UNK
     Route: 042
     Dates: start: 20100528

REACTIONS (4)
  - CIRCULATORY COLLAPSE [None]
  - DISSEMINATED INTRAVASCULAR COAGULATION [None]
  - NECROSIS ISCHAEMIC [None]
  - THROMBOSIS [None]
